FAERS Safety Report 9101295 (Version 1)
Quarter: 2013Q1

REPORT INFORMATION
  Report Type: Report from Study
  Country: US (occurrence: US)
  Receive Date: 20130218
  Receipt Date: 20130218
  Transmission Date: 20140127
  Serious: Yes (Other)
  Sender: FDA-Public Use
  Company Number: US-RB-007865-10

PATIENT
  Sex: Male

DRUGS (2)
  1. SUBOXONE TABLET [Suspect]
     Indication: DRUG DEPENDENCE
     Dosage: DOSING DETAILS UNKNOWN
     Route: 060
     Dates: start: 2009
  2. SUBOXONE TABLET [Suspect]
     Dosage: DOSING DETAILS UNKNOWN; DOSE INCREASED
     Route: 060

REACTIONS (5)
  - Hepatitis C [Recovered/Resolved]
  - Nasopharyngitis [Recovered/Resolved]
  - Malaise [Recovered/Resolved]
  - Drug dependence [Recovered/Resolved]
  - Dry mouth [Not Recovered/Not Resolved]
